FAERS Safety Report 9091250 (Version 3)
Quarter: 2013Q2

REPORT INFORMATION
  Report Type: Report from Study
  Country: DE (occurrence: DE)
  Receive Date: 20130201
  Receipt Date: 20130410
  Transmission Date: 20140414
  Serious: Yes (Other)
  Sender: FDA-Public Use
  Company Number: DE-BRISTOL-MYERS SQUIBB COMPANY-17328766

PATIENT
  Age: 27 Year
  Sex: Male

DRUGS (3)
  1. CETUXIMAB [Suspect]
     Indication: COLON CANCER
     Dosage: RECENT DOSE: 04-NOV-2010
  2. IRINOTECAN HCL [Suspect]
     Indication: COLON CANCER
  3. CAPECITABINE [Suspect]
     Indication: COLON CANCER

REACTIONS (1)
  - Subileus [Recovered/Resolved]
